FAERS Safety Report 7261893-6 (Version None)
Quarter: 2011Q1

REPORT INFORMATION
  Report Type: 
  Country: None (occurrence: None)
  Receive Date: 20110130
  Receipt Date: 20101130
  Transmission Date: 20110831
  Serious: No
  Sender: FDA-Public Use
  Company Number: US-ABBOTT-10P-163-0688718-00

PATIENT
  Age: 33 Year
  Sex: Male

DRUGS (14)
  1. CINNAMON OIL [Concomitant]
     Indication: MEDICAL DIET
  2. VIT C [Concomitant]
     Indication: MEDICAL DIET
  3. GLUDDEMIR [Concomitant]
     Indication: MEDICAL DIET
  4. PURE HONEY [Concomitant]
     Indication: MEDICAL DIET
  5. OREGANO OIL [Concomitant]
     Indication: MEDICAL DIET
  6. APPLE CIDER VINEGAR [Concomitant]
     Indication: MEDICAL DIET
     Dosage: 1/2 TSP DAILY
  7. MULTI VIT [Concomitant]
     Indication: MEDICAL DIET
  8. PRO-BIOTICS [Concomitant]
     Indication: MEDICAL DIET
  9. HUMIRA [Suspect]
     Indication: CROHN'S DISEASE
     Dates: start: 20101001
  10. LOVAZA [Concomitant]
     Indication: MEDICAL DIET
  11. TUMERIC [Concomitant]
     Indication: MEDICAL DIET
  12. CALCIUM [Concomitant]
     Indication: MEDICAL DIET
  13. OLIVE OIL [Concomitant]
     Indication: MEDICAL DIET
  14. FLAX SEED [Concomitant]
     Indication: MEDICAL DIET

REACTIONS (1)
  - RECTAL HAEMORRHAGE [None]
